FAERS Safety Report 22283432 (Version 1)
Quarter: 2023Q2

REPORT INFORMATION
  Report Type: Spontaneous
  Country: US (occurrence: None)
  Receive Date: 20230503
  Receipt Date: 20230503
  Transmission Date: 20230722
  Serious: Yes (Disabling)
  Sender: FDA-Public Use
  Company Number: None

PATIENT
  Age: 65 Year
  Sex: Female
  Weight: 86.18 kg

DRUGS (6)
  1. TIMOLOL MALEATE [Suspect]
     Active Substance: TIMOLOL MALEATE
     Indication: Blindness
     Dosage: OTHER QUANTITY : 1 DROP;?FREQUENCY : TWICE A DAY;?
     Route: 047
     Dates: start: 20230309, end: 20230314
  2. WELLBUTRIN [Concomitant]
     Active Substance: BUPROPION HYDROCHLORIDE
  3. NEXIUM [Concomitant]
     Active Substance: ESOMEPRAZOLE MAGNESIUM
  4. VALIUM [Concomitant]
     Active Substance: DIAZEPAM
  5. TYLENOL [Concomitant]
     Active Substance: ACETAMINOPHEN
  6. LETEIN [Concomitant]

REACTIONS (6)
  - Recalled product administered [None]
  - Corneal disorder [None]
  - Iritis [None]
  - Condition aggravated [None]
  - Blindness unilateral [None]
  - Drug hypersensitivity [None]

NARRATIVE: CASE EVENT DATE: 20230301
